APPROVED DRUG PRODUCT: CISATRACURIUM BESYLATE
Active Ingredient: CISATRACURIUM BESYLATE
Strength: EQ 10MG BASE/ML
Dosage Form/Route: INJECTABLE;INJECTION
Application: A212432 | Product #002
Applicant: PIRAMAL HEALTHCARE UK LTD
Approved: Mar 11, 2022 | RLD: No | RS: No | Type: DISCN